FAERS Safety Report 17693091 (Version 1)
Quarter: 2020Q2

REPORT INFORMATION
  Report Type: Spontaneous
  Country: US (occurrence: US)
  Receive Date: 20200422
  Receipt Date: 20200422
  Transmission Date: 20200714
  Serious: No
  Sender: FDA-Public Use
  Company Number: US-PFIZER INC-2020153297

PATIENT
  Age: 79 Year
  Sex: Female
  Weight: 72.57 kg

DRUGS (4)
  1. METOPROLOL. [Concomitant]
     Active Substance: METOPROLOL
     Indication: BLOOD PRESSURE MEASUREMENT
     Dosage: 100MG; TAKE TWO TWICE DAILY
  2. SPIRONOLACTONE. [Concomitant]
     Active Substance: SPIRONOLACTONE
     Indication: BLOOD PRESSURE MEASUREMENT
     Dosage: 20MG; TAKE TWICE DAILY BY MOUTH
     Route: 048
  3. ADVIL PM [Suspect]
     Active Substance: DIPHENHYDRAMINE CITRATE\IBUPROFEN
     Indication: SLEEP DISORDER
     Dosage: 2 DF, ONCE A DAY (DIPHENHYDRAMINE 38MG/IBUPROFEN 200MG, AT BEDTIME)
     Route: 048
  4. ATORVASTATIN [Concomitant]
     Active Substance: ATORVASTATIN
     Indication: BLOOD CHOLESTEROL INCREASED
     Dosage: 20 MG, TAKE ONCE DAILY BY MOUTH
     Route: 048

REACTIONS (1)
  - Rash [Not Recovered/Not Resolved]

NARRATIVE: CASE EVENT DATE: 201906
